FAERS Safety Report 14708514 (Version 3)
Quarter: 2023Q1

REPORT INFORMATION
  Report Type: Spontaneous
  Country: US (occurrence: US)
  Receive Date: 20180403
  Receipt Date: 20230110
  Transmission Date: 20230417
  Serious: Yes (Death, Other)
  Sender: FDA-Public Use
  Company Number: US-GLAXOSMITHKLINE-US2018GSK056096

PATIENT
  Sex: Male
  Weight: 47 kg

DRUGS (6)
  1. PREVACID [Suspect]
     Active Substance: LANSOPRAZOLE
     Indication: Product used for unknown indication
     Dosage: UNK
     Route: 065
  2. PREVACID [Suspect]
     Active Substance: LANSOPRAZOLE
     Indication: Product used for unknown indication
     Dosage: UNK
     Route: 065
  3. OMEPRAZOLE [Suspect]
     Active Substance: OMEPRAZOLE
     Indication: Gastrooesophageal reflux disease
     Dosage: 20 MG, QD
     Route: 048
  4. OMEPRAZOLE [Suspect]
     Active Substance: OMEPRAZOLE
     Indication: Abdominal discomfort
  5. PANTOPRAZOLE [Suspect]
     Active Substance: PANTOPRAZOLE
     Indication: Gastrooesophageal reflux disease
     Dosage: 40 MG, QD
     Route: 042
  6. PANTOPRAZOLE [Suspect]
     Active Substance: PANTOPRAZOLE
     Indication: Abdominal discomfort

REACTIONS (12)
  - End stage renal disease [Fatal]
  - Acute kidney injury [Unknown]
  - Chronic kidney disease [Unknown]
  - Renal impairment [Unknown]
  - Haemorrhagic cyst [Unknown]
  - Renal failure [Unknown]
  - Kidney small [Unknown]
  - Aortic aneurysm [Unknown]
  - Nephropathy [Unknown]
  - Renal cyst [Unknown]
  - Nephrogenic anaemia [Unknown]
  - Prostate cancer [Unknown]
